FAERS Safety Report 8723386 (Version 3)
Quarter: 2012Q4

REPORT INFORMATION
  Report Type: 
  Country: US (occurrence: US)
  Receive Date: 20120814
  Receipt Date: 20120913
  Transmission Date: 20130627
  Serious: No
  Sender: FDA-Public Use
  Company Number: US-BAYER-2012-077194

PATIENT
  Age: 60 Year
  Sex: Female

DRUGS (2)
  1. CLIMARA PRO [Suspect]
     Dosage: 0.045/0.015
     Dates: start: 2004
  2. CLIMARA PRO [Suspect]

REACTIONS (6)
  - Erythema [None]
  - Burning sensation [None]
  - Skin exfoliation [None]
  - Erythema [Not Recovered/Not Resolved]
  - Erythema [None]
  - Thermal burn [None]
